FAERS Safety Report 21073191 (Version 3)
Quarter: 2022Q3

REPORT INFORMATION
  Report Type: Spontaneous
  Country: JP (occurrence: JP)
  Receive Date: 20220712
  Receipt Date: 20220923
  Transmission Date: 20221026
  Serious: No
  Sender: FDA-Public Use
  Company Number: JP-KYOWAKIRIN-2022AKK010327

PATIENT
  Age: 87 Year
  Sex: Male

DRUGS (10)
  1. DARBEPOETIN ALFA [Suspect]
     Active Substance: DARBEPOETIN ALFA
     Indication: Product used for unknown indication
     Dosage: UNK
     Route: 065
     Dates: end: 202204
  2. DAPRODUSTAT [Suspect]
     Active Substance: DAPRODUSTAT
     Indication: Nephrogenic anaemia
     Dosage: 4 MILLIGRAM
     Route: 048
     Dates: start: 20220422, end: 20220422
  3. DAPRODUSTAT [Suspect]
     Active Substance: DAPRODUSTAT
     Dosage: 6 MILLIGRAM
     Route: 048
     Dates: start: 20220628, end: 20220628
  4. DAPRODUSTAT [Suspect]
     Active Substance: DAPRODUSTAT
     Dosage: 8 MILLIGRAM
     Route: 048
     Dates: start: 20220726
  5. FEBUXOSTAT [Concomitant]
     Active Substance: FEBUXOSTAT
     Indication: Hyperuricaemia
     Dosage: 40 MG X1
     Route: 048
  6. NEXIUM [Concomitant]
     Active Substance: ESOMEPRAZOLE MAGNESIUM
     Indication: Gastritis
     Dosage: 20 MG X1
     Route: 048
  7. NEXIUM [Concomitant]
     Active Substance: ESOMEPRAZOLE MAGNESIUM
     Dosage: 20 UNK  *SINGLE
     Route: 048
  8. CALCIUM POLYSTYRENE SULFONATE [Concomitant]
     Active Substance: CALCIUM POLYSTYRENE SULFONATE
     Indication: Hyperkalaemia
     Dosage: 25 G X2
     Route: 048
  9. CYANOCOBALAMIN\PYRIDOXINE HYDROCHLORIDE\THIAMINE [Concomitant]
     Active Substance: CYANOCOBALAMIN\PYRIDOXINE HYDROCHLORIDE\THIAMINE
     Indication: Vitamin supplementation
     Dosage: 25 G X3
     Route: 048
  10. METHYLCOBALAMIN [Concomitant]
     Active Substance: METHYLCOBALAMIN
     Indication: Nervous system disorder
     Dosage: 500 MICROGRAM, TID
     Route: 065

REACTIONS (1)
  - No adverse event [Unknown]
